FAERS Safety Report 8367775-0 (Version None)
Quarter: 2012Q2

REPORT INFORMATION
  Report Type: 
  Country: None (occurrence: None)
  Receive Date: 20120517
  Receipt Date: 20120508
  Transmission Date: 20120825
  Serious: Yes (Other)
  Sender: FDA-Public Use
  Company Number: GB-ROCHE-1043915

PATIENT
  Sex: Male

DRUGS (1)
  1. BEVACIZUMAB [Suspect]
     Indication: CHORIORETINAL ATROPHY
     Dosage: 1.25 MG/0.05 ML
     Route: 050
     Dates: start: 20120130

REACTIONS (1)
  - UVEITIS [None]
